FAERS Safety Report 4772722-4 (Version None)
Quarter: 2005Q3

REPORT INFORMATION
  Report Type: 
  Country: None (occurrence: None)
  Receive Date: 20050919
  Receipt Date: 20050913
  Transmission Date: 20060218
  Serious: Yes (Life-Threatening, Other)
  Sender: FDA-Public Use
  Company Number: 2005AP04870

PATIENT
  Age: 41 Year
  Sex: Female

DRUGS (2)
  1. SEROQUEL [Suspect]
     Indication: DEPRESSION
     Route: 048
     Dates: start: 20030101
  2. SEROQUEL [Suspect]
     Dosage: POSSIBLY TOOK 44 TABLETS AT ONE TIME.
     Route: 048

REACTIONS (4)
  - INCOHERENT [None]
  - INTENTIONAL MISUSE [None]
  - OVERDOSE [None]
  - SUICIDAL IDEATION [None]
